FAERS Safety Report 7826997-5 (Version None)
Quarter: 2011Q4

REPORT INFORMATION
  Report Type: 
  Country: None (occurrence: None)
  Receive Date: 20111018
  Receipt Date: 20111006
  Transmission Date: 20120403
  Serious: Yes (Hospitalization, Other)
  Sender: FDA-Public Use
  Company Number: 07-AUR-01411

PATIENT
  Age: 55 Year
  Sex: Female

DRUGS (6)
  1. IMIPRAMINE [Suspect]
     Indication: ANXIETY DISORDER
     Dosage: 25 MG (25 MG,1 IN 1 D)
     Dates: end: 20050701
  2. IMIPRAMINE [Suspect]
     Indication: DEPRESSION
     Dosage: 25 MG (25 MG,1 IN 1 D)
     Dates: end: 20050701
  3. IMIPRAMINE [Suspect]
     Indication: ANXIETY DISORDER
     Dosage: 25 MG (25 MG,1 IN 1 D)
     Dates: start: 20060509, end: 20060707
  4. IMIPRAMINE [Suspect]
     Indication: DEPRESSION
     Dosage: 25 MG (25 MG,1 IN 1 D)
     Dates: start: 20060509, end: 20060707
  5. LEVOTHYROXINE SODIUM [Concomitant]
  6. CITALOPRAM HYDROBROMIDE [Suspect]
     Indication: DEPRESSION
     Dosage: 20 MG (20 MG,1 IN 1 D),ORAL
     Route: 048
     Dates: start: 20050701

REACTIONS (3)
  - ANGLE CLOSURE GLAUCOMA [None]
  - HEADACHE [None]
  - ANXIETY DISORDER [None]
